FAERS Safety Report 6271331-8 (Version None)
Quarter: 2009Q3

REPORT INFORMATION
  Report Type: 
  Country: None (occurrence: None)
  Receive Date: 20090717
  Receipt Date: 20090710
  Transmission Date: 20100115
  Serious: Yes (Hospitalization)
  Sender: FDA-Public Use
  Company Number: US-KINGPHARMUSA00001-K200900780

PATIENT
  Age: 83 Year
  Sex: Male

DRUGS (14)
  1. ALTACE [Suspect]
     Dosage: UNK
     Dates: end: 20080111
  2. ALTACE [Suspect]
     Dosage: 1.25 MG, QD
     Dates: start: 20080401
  3. FRAGMIN [Concomitant]
  4. LASIX [Concomitant]
  5. LIPITOR [Concomitant]
  6. CLOPIDOGREL [Concomitant]
     Indication: BLOOD PRESSURE INCREASED
     Dosage: 75 MG, QD
  7. CLOPIDOGREL [Concomitant]
     Indication: ATRIAL FIBRILLATION
  8. CLOPIDOGREL [Concomitant]
     Indication: PROPHYLAXIS
  9. IRBESARTAN [Concomitant]
     Indication: BLOOD PRESSURE INCREASED
     Dosage: 150 MG, QD
     Dates: start: 20040610, end: 20040623
  10. IRBESARTAN [Concomitant]
     Indication: ATRIAL FIBRILLATION
     Dosage: 300 MG, QD
     Dates: start: 20090624
  11. IRBESARTAN [Concomitant]
     Indication: PROPHYLAXIS
  12. ASPIRIN [Concomitant]
     Indication: ATRIAL FIBRILLATION
     Dosage: 80 MG, UNK
     Route: 048
     Dates: start: 20040613
  13. ASPIRIN [Concomitant]
     Indication: PROPHYLAXIS
  14. WARFARIN SODIUM [Concomitant]
     Indication: ANTICOAGULANT THERAPY

REACTIONS (12)
  - ASTHENIA [None]
  - CARDIAC FAILURE CONGESTIVE [None]
  - CLOSTRIDIUM DIFFICILE COLITIS [None]
  - CONTUSION [None]
  - DIZZINESS [None]
  - HAEMOGLOBIN DECREASED [None]
  - HYPOTENSION [None]
  - HYPOVOLAEMIA [None]
  - MALAISE [None]
  - ORTHOSTATIC HYPOTENSION [None]
  - PALLOR [None]
  - PULMONARY OEDEMA [None]
